FAERS Safety Report 8326798-8 (Version None)
Quarter: 2012Q2

REPORT INFORMATION
  Report Type: 
  Country: None (occurrence: None)
  Receive Date: 20120501
  Receipt Date: 20120425
  Transmission Date: 20120825
  Serious: Yes (Other)
  Sender: FDA-Public Use
  Company Number: US-PFIZER INC-2012102884

PATIENT
  Sex: Male
  Weight: 78.458 kg

DRUGS (6)
  1. LYRICA [Suspect]
     Indication: PANIC ATTACK
     Dosage: 75 MG, 3X/DAY
     Dates: start: 20120301
  2. SIMVASTATIN [Concomitant]
     Indication: BLOOD CHOLESTEROL ABNORMAL
     Dosage: 20 MG, DAILY
  3. XANAX [Suspect]
     Indication: PANIC ATTACK
     Dosage: UNK
     Dates: end: 20110101
  4. DILANTIN [Suspect]
     Indication: CONVULSION
     Dosage: UNK
  5. LEVOTHYROXINE SODIUM [Concomitant]
     Indication: THYROID DISORDER
     Dosage: 100 UG, DAILY
  6. LISINOPRIL [Concomitant]
     Indication: BLOOD PRESSURE ABNORMAL
     Dosage: 10 MG, DAILY

REACTIONS (2)
  - CONVULSION [None]
  - DRUG DEPENDENCE [None]
